FAERS Safety Report 20506770 (Version 1)
Quarter: 2022Q1

REPORT INFORMATION
  Report Type: Report from Study
  Country: PT (occurrence: PT)
  Receive Date: 20220223
  Receipt Date: 20220223
  Transmission Date: 20220423
  Serious: Yes (Other)
  Sender: FDA-Public Use
  Company Number: PT-NOVARTISPH-NVSC2022PT038835

PATIENT
  Age: 45 Year
  Sex: Female

DRUGS (1)
  1. GILENYA [Suspect]
     Active Substance: FINGOLIMOD HYDROCHLORIDE
     Indication: Multiple sclerosis
     Dosage: 0.5 MG, QD
     Route: 048
     Dates: start: 20211001

REACTIONS (4)
  - Cataract [Unknown]
  - Macular degeneration [Unknown]
  - Optic nerve disorder [Unknown]
  - Visual acuity tests abnormal [Unknown]

NARRATIVE: CASE EVENT DATE: 20220118
